FAERS Safety Report 8021151-9 (Version None)
Quarter: 2012Q1

REPORT INFORMATION
  Report Type: 
  Country: None (occurrence: None)
  Receive Date: 20120104
  Receipt Date: 20111220
  Transmission Date: 20120608
  Serious: Yes (Other)
  Sender: FDA-Public Use
  Company Number: JP-UCBSA-047463

PATIENT
  Age: 75 Year
  Sex: Male

DRUGS (4)
  1. PHENYTOIN SODIUM CAP [Concomitant]
     Route: 048
  2. EVIPROSTAT [Concomitant]
     Dosage: DAILY DOSE: 1 DF
     Route: 048
  3. KEPPRA [Suspect]
     Indication: CEREBROVASCULAR DISORDER
     Route: 048
     Dates: start: 20111101, end: 20111212
  4. CLARITHROMYCIN [Concomitant]
     Route: 048
     Dates: start: 20111207, end: 20111213

REACTIONS (2)
  - PYREXIA [None]
  - LEUKOPENIA [None]
